FAERS Safety Report 9657219 (Version 1)
Quarter: 2013Q4

REPORT INFORMATION
  Report Type: Spontaneous
  Country: US (occurrence: US)
  Receive Date: 20131030
  Receipt Date: 20131030
  Transmission Date: 20140711
  Serious: No
  Sender: FDA-Public Use
  Company Number: US-009507513-1310USA007101

PATIENT
  Age: 61 Year
  Sex: Female

DRUGS (4)
  1. PEGINTRON [Suspect]
     Indication: HEPATITIS C
     Dosage: REDIPEN
     Dates: start: 20081205, end: 20091130
  2. PEGINTRON [Suspect]
     Dosage: UNK
     Dates: start: 20131010
  3. REBETOL [Suspect]
     Indication: HEPATITIS C
     Dosage: UNK
     Route: 048
     Dates: start: 20081205, end: 20091130
  4. REBETOL [Suspect]
     Dosage: UNK
     Route: 048
     Dates: start: 20131010

REACTIONS (16)
  - Sluggishness [Unknown]
  - Malaise [Unknown]
  - Drug ineffective [Unknown]
  - Therapeutic response decreased [Unknown]
  - Muscle spasms [Unknown]
  - Chills [Unknown]
  - Tremor [Unknown]
  - Asthenia [Unknown]
  - Fatigue [Unknown]
  - Pain [Unknown]
  - Myalgia [Unknown]
  - Feeling hot [Unknown]
  - Pyrexia [Unknown]
  - Lip dry [Unknown]
  - Chapped lips [Unknown]
  - Nausea [Unknown]
